FAERS Safety Report 18519204 (Version 2)
Quarter: 2021Q1

REPORT INFORMATION
  Report Type: Spontaneous
  Country: DE (occurrence: DE)
  Receive Date: 20201118
  Receipt Date: 20210221
  Transmission Date: 20210419
  Serious: Yes (Other)
  Sender: FDA-Public Use
  Company Number: DE-BIOGEN-2020BI00947934

PATIENT
  Age: 33 Year
  Sex: Female

DRUGS (4)
  1. TYSABRI [Suspect]
     Active Substance: NATALIZUMAB
     Indication: RELAPSING-REMITTING MULTIPLE SCLEROSIS
     Dosage: INFUSED OVER 1 HOUR
     Route: 042
     Dates: start: 20170410, end: 20170508
  2. IODINE. [Concomitant]
     Active Substance: IODINE
     Indication: PROPHYLAXIS
     Route: 065
     Dates: start: 20170416
  3. DECRISTOL [Concomitant]
     Indication: IRON DEFICIENCY
     Dosage: 20000 IE
     Route: 065
     Dates: start: 20170515
  4. FOLIO FORTE [Concomitant]
     Active Substance: FOLIC ACID\VITAMINS
     Indication: PREGNANCY
     Route: 065
     Dates: start: 20170206

REACTIONS (2)
  - Maternal exposure during pregnancy [Recovered/Resolved]
  - Abortion spontaneous [Recovered/Resolved]

NARRATIVE: CASE EVENT DATE: 2017
